FAERS Safety Report 6577909-6 (Version None)
Quarter: 2010Q1

REPORT INFORMATION
  Report Type: 
  Country: None (occurrence: None)
  Receive Date: 20100211
  Receipt Date: 20100204
  Transmission Date: 20100710
  Serious: No
  Sender: FDA-Public Use
  Company Number: BR-ROCHE-684202

PATIENT
  Sex: Female

DRUGS (1)
  1. ROACUTAN [Suspect]
     Indication: OIL ACNE
     Route: 064
     Dates: start: 20040101

REACTIONS (2)
  - LIVE BIRTH [None]
  - NO ADVERSE EVENT [None]
